FAERS Safety Report 9456917 (Version 6)
Quarter: 2014Q1

REPORT INFORMATION
  Report Type: Report from Study
  Country: CA (occurrence: CA)
  Receive Date: 20130813
  Receipt Date: 20140131
  Transmission Date: 20141002
  Serious: Yes (Hospitalization, Other)
  Sender: FDA-Public Use
  Company Number: CA-ROCHE-1225499

PATIENT
  Age: 77 Year
  Sex: Male

DRUGS (6)
  1. ZELBORAF [Suspect]
     Indication: METASTATIC MALIGNANT MELANOMA
     Route: 048
     Dates: start: 20130422
  2. ZELBORAF [Suspect]
     Route: 048
     Dates: start: 20130508
  3. ZELBORAF [Suspect]
     Dosage: TWICE DAILY, 4 PILLS DAILY
     Route: 048
     Dates: start: 20130820
  4. SYNTHROID [Concomitant]
  5. CANDESARTAN [Concomitant]
     Route: 065
  6. JAMP-FINASTERIDE [Concomitant]

REACTIONS (24)
  - Pericarditis [Unknown]
  - Local swelling [Not Recovered/Not Resolved]
  - Hypoaesthesia [Not Recovered/Not Resolved]
  - Heart rate abnormal [Recovered/Resolved]
  - Eye swelling [Not Recovered/Not Resolved]
  - Lacrimation increased [Not Recovered/Not Resolved]
  - Balance disorder [Not Recovered/Not Resolved]
  - Pulmonary oedema [Unknown]
  - Asthenia [Not Recovered/Not Resolved]
  - Insomnia [Unknown]
  - Decreased appetite [Unknown]
  - Dry skin [Unknown]
  - Erythema [Unknown]
  - Pruritus generalised [Unknown]
  - Arthralgia [Recovered/Resolved]
  - Headache [Recovered/Resolved]
  - Musculoskeletal discomfort [Recovered/Resolved]
  - Pain in extremity [Not Recovered/Not Resolved]
  - Hyperkeratosis [Not Recovered/Not Resolved]
  - Fatigue [Not Recovered/Not Resolved]
  - Asthenia [Not Recovered/Not Resolved]
  - Hypoaesthesia [Not Recovered/Not Resolved]
  - Arthralgia [Not Recovered/Not Resolved]
  - Musculoskeletal pain [Unknown]
